FAERS Safety Report 12320472 (Version 1)
Quarter: 2016Q2

REPORT INFORMATION
  Report Type: Spontaneous
  Country: US (occurrence: US)
  Receive Date: 20160429
  Receipt Date: 20160429
  Transmission Date: 20160815
  Serious: Yes (Hospitalization, Other)
  Sender: FDA-Public Use
  Company Number: US-ALLERGAN-1653037US

PATIENT
  Age: 49 Year
  Sex: Female
  Weight: 120.18 kg

DRUGS (1)
  1. VIBERZI [Suspect]
     Active Substance: ELUXADOLINE
     Indication: IRRITABLE BOWEL SYNDROME
     Dosage: 75 MG, QD
     Route: 048
     Dates: start: 20160323, end: 20160329

REACTIONS (6)
  - Sphincter of Oddi dysfunction [Recovered/Resolved]
  - Hepatic enzyme abnormal [Unknown]
  - Pancreatitis [Recovered/Resolved]
  - Abdominal pain [Unknown]
  - Inappropriate schedule of drug administration [Unknown]
  - Chest pain [Unknown]

NARRATIVE: CASE EVENT DATE: 20160329
